FAERS Safety Report 16570487 (Version 1)
Quarter: 2019Q3

REPORT INFORMATION
  Report Type: Report from Study
  Country: NL (occurrence: NL)
  Receive Date: 20190715
  Receipt Date: 20190715
  Transmission Date: 20191004
  Serious: Yes (Hospitalization, Other)
  Sender: FDA-Public Use
  Company Number: NL-TEVA-2019-NL-1077695

PATIENT
  Age: 62 Year
  Sex: Female

DRUGS (7)
  1. PAROXETIN 20MG [Concomitant]
     Active Substance: PAROXETINE HYDROCHLORIDE
     Dosage: 1TABLET
  2. NIFEDIPINE 10MG [Concomitant]
     Dosage: 2 TABLETS
  3. SIRDALUD 5 MG [Concomitant]
     Dosage: 2 TABLETS
  4. COPAXONE [Suspect]
     Active Substance: GLATIRAMER ACETATE
     Indication: MULTIPLE SCLEROSIS
     Dosage: OPLOSSING VOOR INJECTIE
     Route: 058
     Dates: start: 20150406
  5. BACLOFEN 10 MG [Concomitant]
     Active Substance: BACLOFEN
     Dosage: 2 TABLETS
  6. OXYBUTYNIN 2.5MG [Concomitant]
     Dosage: 3 TABLETS
  7. ENALAPRIL 20MG [Concomitant]
     Active Substance: ENALAPRIL
     Dosage: 2 TABLETS

REACTIONS (3)
  - Rib fracture [Recovered/Resolved]
  - Pneumothorax [Recovered/Resolved]
  - Clavicle fracture [Recovered/Resolved]

NARRATIVE: CASE EVENT DATE: 201902
